FAERS Safety Report 5778000-9 (Version None)
Quarter: 2008Q2

REPORT INFORMATION
  Report Type: 
  Country: None (occurrence: None)
  Receive Date: 20080618
  Receipt Date: 20080618
  Transmission Date: 20081010
  Serious: No
  Sender: FDA-Public Use
  Company Number: None

PATIENT
  Sex: Female
  Weight: 90.2658 kg

DRUGS (7)
  1. STARLIX [Suspect]
     Indication: TYPE 2 DIABETES MELLITUS
     Dosage: 120 MG  BEFORE MEALS  ORAL
     Route: 048
     Dates: start: 20080529, end: 20080615
  2. METFORMIN [Concomitant]
  3. GLYBURIDE [Concomitant]
  4. PRAVASTATIN [Concomitant]
  5. LEVOXYL [Concomitant]
  6. ASPIRIN [Concomitant]
  7. CALCIUM [Concomitant]

REACTIONS (1)
  - ABDOMINAL PAIN UPPER [None]
